FAERS Safety Report 23183470 (Version 1)
Quarter: 2023Q4

REPORT INFORMATION
  Report Type: Spontaneous
  Country: US (occurrence: None)
  Receive Date: 20231114
  Receipt Date: 20231114
  Transmission Date: 20240109
  Serious: Yes (Other)
  Sender: FDA-Public Use
  Company Number: US-FARMAPROD-202309-2749

PATIENT
  Sex: Female

DRUGS (4)
  1. OXERVATE [Suspect]
     Active Substance: CENEGERMIN-BKBJ
     Indication: Hypoaesthesia eye
     Route: 047
     Dates: start: 20230807
  2. OXERVATE [Suspect]
     Active Substance: CENEGERMIN-BKBJ
     Indication: Neurotrophic keratopathy
  3. RESTASIS [Concomitant]
     Active Substance: CYCLOSPORINE
  4. PREDNISOLONE/NEPAFENAC [Concomitant]

REACTIONS (2)
  - Corneal exfoliation [Recovering/Resolving]
  - Drug ineffective [Unknown]
